FAERS Safety Report 20843957 (Version 1)
Quarter: 2022Q2

REPORT INFORMATION
  Report Type: Spontaneous
  Country: US (occurrence: US)
  Receive Date: 20220518
  Receipt Date: 20220518
  Transmission Date: 20220721
  Serious: No
  Sender: FDA-Public Use
  Company Number: US-BAYER-2022A069855

PATIENT
  Sex: Female

DRUGS (2)
  1. MIRENA [Suspect]
     Active Substance: LEVONORGESTREL
     Indication: Heavy menstrual bleeding
     Dosage: 20?G/DAY
     Route: 015
     Dates: start: 20170502
  2. MIRENA [Suspect]
     Active Substance: LEVONORGESTREL
     Indication: Ovarian cyst

REACTIONS (1)
  - Device use issue [None]

NARRATIVE: CASE EVENT DATE: 20220502
